FAERS Safety Report 25256019 (Version 1)
Quarter: 2025Q2

REPORT INFORMATION
  Report Type: Spontaneous
  Country: GB (occurrence: GB)
  Receive Date: 20250430
  Receipt Date: 20250430
  Transmission Date: 20250717
  Serious: Yes (Other)
  Sender: MYLAN
  Company Number: None

PATIENT

DRUGS (4)
  1. DOXAZOSIN [Suspect]
     Active Substance: DOXAZOSIN MESYLATE
     Indication: Product used for unknown indication
  2. DOXAZOSIN [Suspect]
     Active Substance: DOXAZOSIN MESYLATE
     Route: 065
  3. DOXAZOSIN [Suspect]
     Active Substance: DOXAZOSIN MESYLATE
     Route: 065
  4. DOXAZOSIN [Suspect]
     Active Substance: DOXAZOSIN MESYLATE

REACTIONS (1)
  - Hepatotoxicity [Recovered/Resolved]
